FAERS Safety Report 9698501 (Version 2)
Quarter: 2013Q4

REPORT INFORMATION
  Report Type: Spontaneous
  Country: US (occurrence: None)
  Receive Date: 20131030
  Receipt Date: 20131112
  Transmission Date: 20140711
  Serious: Yes (Other)
  Sender: FDA-Public Use
  Company Number: 2013038588

PATIENT
  Sex: 0

DRUGS (1)
  1. HIZENTRA [Suspect]

REACTIONS (1)
  - Cellulitis [None]
